FAERS Safety Report 15710164 (Version 6)
Quarter: 2019Q3

REPORT INFORMATION
  Report Type: Report from Study
  Country: PT (occurrence: PT)
  Receive Date: 20181211
  Receipt Date: 20190717
  Transmission Date: 20191004
  Serious: Yes (Hospitalization)
  Sender: FDA-Public Use
  Company Number: PHHO2018PT011227

PATIENT
  Age: 68 Year
  Sex: Male
  Weight: 64 kg

DRUGS (6)
  1. DEXAMETHASONE. [Suspect]
     Active Substance: DEXAMETHASONE
     Dosage: 20 MG, BIW
     Route: 048
     Dates: start: 20181025
  2. BORTEZOMIB. [Suspect]
     Active Substance: BORTEZOMIB
     Dosage: 1 MG/M2, OT
     Route: 058
     Dates: start: 20181025
  3. LBH589 [Suspect]
     Active Substance: PANOBINOSTAT
     Dosage: 10 MG, TIW
     Route: 048
     Dates: start: 20181025
  4. DEXAMETHASONE. [Suspect]
     Active Substance: DEXAMETHASONE
     Indication: PLASMA CELL MYELOMA
     Dosage: 20 MG, BIW
     Route: 048
     Dates: start: 20180410, end: 20181015
  5. LBH589 [Suspect]
     Active Substance: PANOBINOSTAT
     Dosage: 10 MG, TIW
     Route: 048
     Dates: start: 20180410, end: 20181015
  6. BORTEZOMIB. [Suspect]
     Active Substance: BORTEZOMIB
     Dosage: 1 MG/M2, OT
     Route: 058
     Dates: start: 20180410, end: 20181015

REACTIONS (1)
  - Pneumonia [Recovered/Resolved]

NARRATIVE: CASE EVENT DATE: 20181011
